FAERS Safety Report 4591303-9 (Version None)
Quarter: 2005Q1

REPORT INFORMATION
  Report Type: 
  Country: None (occurrence: None)
  Receive Date: 20050218
  Receipt Date: 20050210
  Transmission Date: 20050727
  Serious: Yes (Disabling)
  Sender: FDA-Public Use
  Company Number: 2005028496

PATIENT
  Age: 52 Year
  Sex: Female

DRUGS (7)
  1. NEURONTIN [Suspect]
     Indication: SPINAL DISORDER
     Dosage: (600 MG),ORAL
     Route: 048
  2. CARBAMAZEPINE [Concomitant]
  3. BACLOFEN [Concomitant]
  4. CALCIUM WITH VITAMIN D (CALCIUM PHOSPHATE, CALCIUM SODIUM LACTATE, ERG [Concomitant]
  5. THIAMINE HCL [Concomitant]
  6. PHENOBARBITAL SODIUM 100MG CAP [Concomitant]
  7. PHENYTOIN [Concomitant]

REACTIONS (9)
  - ASTHENIA [None]
  - DIPLOPIA [None]
  - DIZZINESS [None]
  - FEELING ABNORMAL [None]
  - HEARING IMPAIRED [None]
  - NERVOUSNESS [None]
  - SOMNOLENCE [None]
  - VISUAL DISTURBANCE [None]
  - VOMITING [None]
